FAERS Safety Report 12281396 (Version 1)
Quarter: 2016Q2

REPORT INFORMATION
  Report Type: Spontaneous
  Country: US (occurrence: None)
  Receive Date: 20160418
  Receipt Date: 20160418
  Transmission Date: 20160815
  Serious: Yes (Hospitalization)
  Sender: FDA-Public Use
  Company Number: None

PATIENT
  Age: 34 Year
  Sex: Female
  Weight: 67.6 kg

DRUGS (9)
  1. IT ARA C [Concomitant]
  2. ALLOPURINOL. [Concomitant]
     Active Substance: ALLOPURINOL
  3. VINCRISTINE [Concomitant]
     Active Substance: VINCRISTINE
  4. PREDNISONE. [Concomitant]
     Active Substance: PREDNISONE
  5. ACYCLOVIR. [Concomitant]
     Active Substance: ACYCLOVIR
  6. RITUXIMAB [Concomitant]
     Active Substance: RITUXIMAB
  7. DAUNORUBICIN [Concomitant]
     Active Substance: DAUNORUBICIN
  8. PEGASPARGASE [Concomitant]
     Active Substance: PEGASPARGASE
  9. PEGASPARGASE 3750UNITS/5ML SIGMA TAU [Suspect]
     Active Substance: PEGASPARGASE
     Indication: ACUTE LYMPHOCYTIC LEUKAEMIA
     Dosage: 4425 UNITS/NS 100ML
     Route: 042
     Dates: start: 20160321

REACTIONS (2)
  - Cerebral haemorrhage [None]
  - Cerebral venous thrombosis [None]

NARRATIVE: CASE EVENT DATE: 20160331
